FAERS Safety Report 5703501-9 (Version None)
Quarter: 2008Q2

REPORT INFORMATION
  Report Type: 
  Country: None (occurrence: None)
  Receive Date: 20080411
  Receipt Date: 20080331
  Transmission Date: 20081010
  Serious: Yes (Hospitalization)
  Sender: FDA-Public Use
  Company Number: US-AMGEN-QUU272222

PATIENT
  Sex: Female

DRUGS (1)
  1. ENBREL [Suspect]
     Indication: RHEUMATOID ARTHRITIS
     Route: 058
     Dates: start: 20050720

REACTIONS (12)
  - CARDIAC ENZYMES INCREASED [None]
  - COAGULATION TIME PROLONGED [None]
  - DILATATION INTRAHEPATIC DUCT ACQUIRED [None]
  - DRY MOUTH [None]
  - FEELING ABNORMAL [None]
  - LYMPHADENOPATHY [None]
  - MALAISE [None]
  - PULMONARY MASS [None]
  - SEPTOPLASTY [None]
  - SINUSITIS [None]
  - TONGUE COATED [None]
  - TONGUE DISCOLOURATION [None]
